FAERS Safety Report 15386033 (Version 1)
Quarter: 2018Q3

REPORT INFORMATION
  Report Type: Spontaneous
  Country: FR (occurrence: FR)
  Receive Date: 20180914
  Receipt Date: 20180914
  Transmission Date: 20181010
  Serious: Yes (Hospitalization)
  Sender: FDA-Public Use
  Company Number: FR-PFIZER INC-2018368021

PATIENT
  Age: 33 Year
  Sex: Male
  Weight: 86 kg

DRUGS (1)
  1. LEVOFLOXACIN. [Suspect]
     Active Substance: LEVOFLOXACIN
     Indication: TONSILLITIS
     Dosage: 1000 MG, UNK
     Dates: start: 20180709, end: 20180714

REACTIONS (2)
  - Seizure [Recovered/Resolved with Sequelae]
  - Myoclonus [Recovered/Resolved with Sequelae]

NARRATIVE: CASE EVENT DATE: 20180721
